FAERS Safety Report 5140979-6 (Version None)
Quarter: 2006Q4

REPORT INFORMATION
  Report Type: 
  Country: None (occurrence: None)
  Receive Date: 20061027
  Receipt Date: 20061027
  Transmission Date: 20070319
  Serious: Yes (Hospitalization)
  Sender: FDA-Public Use
  Company Number: None

PATIENT
  Age: 49 Year
  Sex: Male

DRUGS (12)
  1. CEFEPIME [Suspect]
     Indication: NOSOCOMIAL INFECTION
     Dosage: 2GM IV Q8H
     Route: 042
     Dates: start: 20060831, end: 20060906
  2. ACETAMINOPHEN [Concomitant]
  3. ALBUTEROL [Concomitant]
  4. CHLORDIAZEPOXIDE HCL [Concomitant]
  5. CLONIDINE HCL [Concomitant]
  6. FOSINOPRIL SODIUM [Concomitant]
  7. HUMULIN R [Concomitant]
  8. IPRATROPIUM BR [Concomitant]
  9. LABETALOL HCL [Concomitant]
  10. LORAZEPAM [Concomitant]
  11. MAGNESIUM SULFATE [Concomitant]
  12. METOPROLOL TARTRATE [Concomitant]

REACTIONS (1)
  - THROMBOCYTOPENIA [None]
